FAERS Safety Report 8905367 (Version 2)
Quarter: 2013Q3

REPORT INFORMATION
  Report Type: Spontaneous
  Country: US (occurrence: US)
  Receive Date: 20121112
  Receipt Date: 20130917
  Transmission Date: 20140515
  Serious: Yes (Hospitalization)
  Sender: FDA-Public Use
  Company Number: US-BAYER-2012-116937

PATIENT
  Age: 20 Year
  Sex: Female
  Weight: 58.64 kg

DRUGS (12)
  1. YASMIN [Suspect]
  2. OCELLA [Suspect]
  3. ADVAIR [Concomitant]
     Dosage: TWICE PER DAY
     Route: 045
  4. PREDNISONE [Concomitant]
     Indication: ASTHMA
     Dosage: 40 MG, ONCE
     Route: 048
  5. ALBUTEROL [Concomitant]
     Dosage: EVERY 2 HOURS
  6. ZITHROMAX [Concomitant]
     Dosage: 250 MG 2 TIMES 1 DAY, THEN 1 EVERY DAY 4 TIMES A DAYS
  7. ROBITUSSIN AC [CODEINE PHOSPHATE,GUAIFENESIN] [Concomitant]
  8. IBUPROFEN [Concomitant]
     Dosage: 600 MG, TID
     Route: 048
  9. VICODIN [Concomitant]
     Indication: PAIN
     Dosage: 5-500 MG EVERY 4-6 HOURS
     Route: 048
  10. BENADRYL [Concomitant]
  11. ADVIL [Concomitant]
  12. HYDROMORPHONE [Concomitant]

REACTIONS (1)
  - Pulmonary embolism [None]
